FAERS Safety Report 7493472-X (Version None)
Quarter: 2011Q2

REPORT INFORMATION
  Report Type: 
  Country: None (occurrence: None)
  Receive Date: 20110520
  Receipt Date: 20110509
  Transmission Date: 20111010
  Serious: Yes (Other)
  Sender: FDA-Public Use
  Company Number: US-BAYER-201031658NA

PATIENT
  Sex: Female
  Weight: 70 kg

DRUGS (13)
  1. YASMIN [Suspect]
     Indication: CONTRACEPTION
     Dosage: UNK UNK, UNK
     Route: 048
     Dates: start: 20090101, end: 20090831
  2. ALIMENTARY TRACT AND METABOLISM [Concomitant]
     Dosage: UNK
     Dates: start: 20091001
  3. XANAX [Concomitant]
  4. CHILDREN'S TYLENOL SUSPENSION [Concomitant]
     Indication: PAIN
     Dosage: UNK UNK, PRN
  5. TRINESSA [Concomitant]
     Dosage: UNK
     Dates: start: 20090824
  6. YAZ [Suspect]
     Indication: PRODUCT USED FOR UNKNOWN INDICATION
     Route: 048
  7. ALPRAZOLAM [Concomitant]
     Indication: ANXIETY
     Dosage: .125 MG, PRN
     Route: 048
  8. ACCUTANE [Concomitant]
  9. PEPCID [Concomitant]
  10. PRILOSEC [Concomitant]
  11. ZOLOFT [Concomitant]
     Indication: DEPRESSION
     Dosage: 50 MG, QD
     Dates: start: 20090901
  12. MOTRIN [Concomitant]
  13. TUMS [CALCIUM CARBONATE] [Concomitant]
     Indication: GASTROOESOPHAGEAL REFLUX DISEASE
     Dosage: 500 MG, PRN
     Route: 048

REACTIONS (7)
  - CHEST PAIN [None]
  - ABDOMINAL PAIN UPPER [None]
  - BILIARY ADENOMA [None]
  - BACK PAIN [None]
  - CHOLECYSTITIS CHRONIC [None]
  - CHOLELITHIASIS [None]
  - PALPITATIONS [None]
